FAERS Safety Report 5956134-3 (Version None)
Quarter: 2008Q4

REPORT INFORMATION
  Report Type: 
  Country: None (occurrence: None)
  Receive Date: 20081112
  Receipt Date: 20081027
  Transmission Date: 20090506
  Serious: Yes (Death)
  Sender: FDA-Public Use
  Company Number: 08-221

PATIENT
  Age: 26 Year
  Sex: Male

DRUGS (3)
  1. FAZACLO ODT [Suspect]
     Indication: SCHIZOPHRENIA
     Dosage: 62.5 MG DAILY PO
     Route: 048
     Dates: start: 20070410, end: 20080418
  2. PROZAC [Concomitant]
  3. ALBUTEROL [Concomitant]

REACTIONS (1)
  - CONVULSION [None]
